FAERS Safety Report 10730039 (Version 1)
Quarter: 2015Q1

REPORT INFORMATION
  Report Type: Spontaneous
  Country: CN (occurrence: CN)
  Receive Date: 20150122
  Receipt Date: 20150122
  Transmission Date: 20150721
  Serious: Yes (Other)
  Sender: FDA-Public Use
  Company Number: CN-BAYER-2015-008864

PATIENT
  Age: 83 Year
  Sex: Male
  Weight: 57 kg

DRUGS (3)
  1. AVELOX [Suspect]
     Active Substance: MOXIFLOXACIN HYDROCHLORIDE
     Indication: INFECTION
     Dosage: 0.4 G, QD
     Route: 041
     Dates: start: 20140729, end: 20140729
  2. AMBROXOL [Concomitant]
     Active Substance: AMBROXOL
     Indication: SPUTUM ABNORMAL
     Dosage: 60 MG, BID
     Route: 041
     Dates: start: 20140724, end: 20140730
  3. SODIUM CHLORIDE INJECTION [Concomitant]
     Active Substance: SODIUM CHLORIDE
     Indication: SOLVENT SENSITIVITY
     Dosage: 50 ML, BID
     Route: 041
     Dates: start: 20140724, end: 20140730

REACTIONS (4)
  - Cold sweat [Recovered/Resolved]
  - Blood pressure decreased [Recovered/Resolved]
  - Oxygen saturation decreased [Recovered/Resolved]
  - Dyspnoea [Recovered/Resolved]

NARRATIVE: CASE EVENT DATE: 20140729
